FAERS Safety Report 12208986 (Version 1)
Quarter: 2016Q1

REPORT INFORMATION
  Report Type: Spontaneous
  Country: US (occurrence: US)
  Receive Date: 20160324
  Receipt Date: 20160324
  Transmission Date: 20160526
  Serious: No
  Sender: FDA-Public Use
  Company Number: US-SHIONOGI, INC-2016000172

PATIENT
  Sex: Female

DRUGS (7)
  1. OSPHENA [Suspect]
     Active Substance: OSPEMIFENE
     Indication: VAGINAL CYST
     Dosage: EVERY 2 TO 3 DAYS
     Route: 065
     Dates: start: 2015
  2. OSPHENA [Suspect]
     Active Substance: OSPEMIFENE
     Indication: VAGINAL DYSPLASIA
  3. OSPHENA [Suspect]
     Active Substance: OSPEMIFENE
     Indication: VULVOVAGINAL BURNING SENSATION
     Dosage: UNK, QD
     Route: 065
     Dates: start: 2015
  4. OSPHENA [Suspect]
     Active Substance: OSPEMIFENE
     Indication: VULVOVAGINAL PRURITUS
     Dosage: UNK, QD
     Route: 065
     Dates: start: 2015, end: 2015
  5. OSPHENA [Suspect]
     Active Substance: OSPEMIFENE
     Indication: VAGINAL DISCHARGE
  6. OSPHENA [Suspect]
     Active Substance: OSPEMIFENE
     Indication: VAGINAL HAEMORRHAGE
  7. OSPHENA [Suspect]
     Active Substance: OSPEMIFENE
     Indication: OFF LABEL USE

REACTIONS (8)
  - Inability to afford medication [Unknown]
  - Inappropriate schedule of drug administration [Unknown]
  - Somnolence [Unknown]
  - Vaginal haemorrhage [Unknown]
  - Off label use [Unknown]
  - Anaemia [Unknown]
  - Agitation [Unknown]
  - Therapeutic response unexpected [Unknown]

NARRATIVE: CASE EVENT DATE: 2016
